FAERS Safety Report 19093695 (Version 1)
Quarter: 2021Q2

REPORT INFORMATION
  Report Type: Spontaneous
  Country: CN (occurrence: CN)
  Receive Date: 20210405
  Receipt Date: 20210405
  Transmission Date: 20210717
  Serious: Yes (Other)
  Sender: FDA-Public Use
  Company Number: NVSC2021CN075776

PATIENT
  Age: 92 Year
  Sex: Female
  Weight: 47 kg

DRUGS (2)
  1. NORMAL SALINE [Concomitant]
     Active Substance: SODIUM CHLORIDE
     Indication: FLUID REPLACEMENT
     Dosage: 500 ML, ONCE/SINGLE
     Route: 042
     Dates: start: 20180403
  2. ZOLEDRONIC ACID [Suspect]
     Active Substance: ZOLEDRONIC ACID
     Indication: OSTEOPOROSIS
     Dosage: 100 MG : 5 ML (INFUSION INJECTION)
     Route: 042
     Dates: start: 20180403

REACTIONS (3)
  - Blood test abnormal [Unknown]
  - Acute kidney injury [Recovering/Resolving]
  - Hyperpyrexia [Unknown]
